FAERS Safety Report 15656952 (Version 1)
Quarter: 2018Q4

REPORT INFORMATION
  Report Type: Spontaneous
  Country: US (occurrence: US)
  Receive Date: 20181126
  Receipt Date: 20181126
  Transmission Date: 20190205
  Serious: Yes (Disabling)
  Sender: FDA-Public Use
  Company Number: None

PATIENT
  Age: 56 Year
  Sex: Male
  Weight: 88 kg

DRUGS (6)
  1. PANTOPRAZOLE SOD DR 40 MG TAB [Suspect]
     Active Substance: PANTOPRAZOLE SODIUM
     Indication: GASTRIC ULCER
     Dosage: ?          QUANTITY:1 TABLET(S);?
     Route: 048
     Dates: start: 20170715, end: 20180915
  2. FAMOTIDINE. [Concomitant]
     Active Substance: FAMOTIDINE
  3. ATOMOXETINE. [Concomitant]
     Active Substance: ATOMOXETINE HYDROCHLORIDE
  4. HAWTHORN BERRY [Concomitant]
  5. MONTELUKAST [Concomitant]
     Active Substance: MONTELUKAST SODIUM
  6. CETIRIDINE [Concomitant]

REACTIONS (1)
  - Asthma [None]

NARRATIVE: CASE EVENT DATE: 20180502
